FAERS Safety Report 11373248 (Version 1)
Quarter: 2015Q3

REPORT INFORMATION
  Report Type: Spontaneous
  Country: US (occurrence: US)
  Receive Date: 20150811
  Receipt Date: 20150811
  Transmission Date: 20151125
  Serious: Yes (Other)
  Sender: FDA-Public Use
  Company Number: US-ELI_LILLY_AND_COMPANY-US201208000621

PATIENT
  Sex: Female

DRUGS (9)
  1. SPIRONOLACTONE. [Concomitant]
     Active Substance: SPIRONOLACTONE
     Dosage: 20 MG, UNK
     Route: 048
  2. FUROSEMIDE. [Concomitant]
     Active Substance: FUROSEMIDE
     Dosage: 40 MG, UNK
     Route: 048
  3. LEXAPRO [Concomitant]
     Active Substance: ESCITALOPRAM OXALATE
     Dosage: 20 MG, UNK
     Route: 048
  4. AMBIEN [Concomitant]
     Active Substance: ZOLPIDEM TARTRATE
     Dosage: 10 MG, UNK
     Route: 048
  5. NIFEDIPINE. [Concomitant]
     Active Substance: NIFEDIPINE
     Dosage: 30 MG, UNK
     Route: 048
  6. ADCIRCA [Suspect]
     Active Substance: TADALAFIL
     Indication: PULMONARY HYPERTENSION
     Dosage: 40 MG, QD
  7. NORCO [Concomitant]
     Active Substance: ACETAMINOPHEN\HYDROCODONE BITARTRATE
     Dosage: 10 MG, PRN
     Route: 048
  8. CARVEDILOL. [Concomitant]
     Active Substance: CARVEDILOL
     Dosage: 3.125 MG, UNK
  9. BUSPIRONE [Concomitant]
     Active Substance: BUSPIRONE HYDROCHLORIDE
     Dosage: 5 MG, UNK
     Route: 048

REACTIONS (6)
  - Somnolence [Unknown]
  - Chest pain [Recovered/Resolved]
  - Lethargy [Unknown]
  - Accidental overdose [Recovered/Resolved]
  - Dyspepsia [Unknown]
  - Dizziness [Unknown]

NARRATIVE: CASE EVENT DATE: 20120727
